FAERS Safety Report 18143402 (Version 2)
Quarter: 2020Q4

REPORT INFORMATION
  Report Type: Report from Study
  Country: US (occurrence: US)
  Receive Date: 20200812
  Receipt Date: 20201020
  Transmission Date: 20210113
  Serious: No
  Sender: FDA-Public Use
  Company Number: US-IPSEN BIOPHARMACEUTICALS, INC.-2019-12411

PATIENT
  Age: 9 Year
  Sex: Male
  Weight: 15.2 kg

DRUGS (14)
  1. RANITIDINE. [Concomitant]
     Active Substance: RANITIDINE
     Indication: GASTROOESOPHAGEAL REFLUX DISEASE
     Dates: start: 20140908, end: 20180509
  2. DULCOLAX NOS [Concomitant]
     Active Substance: BISACODYL OR DOCUSATE SODIUM
     Indication: CONSTIPATION
     Dosage: QD DAILY
     Dates: start: 20190408, end: 20190819
  3. VITAMIN D3 [Concomitant]
     Active Substance: CHOLECALCIFEROL
     Indication: VITAMIN D DEFICIENCY
     Dosage: QD DAILY
     Dates: start: 20170511, end: 20170610
  4. BACLOFEN. [Concomitant]
     Active Substance: BACLOFEN
     Dates: start: 20180628, end: 20180928
  5. BACLOFEN. [Concomitant]
     Active Substance: BACLOFEN
     Dates: start: 20180928, end: 20190501
  6. DIAZEPAM. [Concomitant]
     Active Substance: DIAZEPAM
     Indication: MUSCLE SPASTICITY
     Dosage: PRN AS REQUIRED
     Route: 054
     Dates: start: 20180605, end: 20191221
  7. DYSPORT [Suspect]
     Active Substance: ABOBOTULINUMTOXINA
     Indication: MUSCLE SPASTICITY
     Dosage: 500 UNITS
     Route: 030
     Dates: start: 20180103, end: 20180103
  8. DYSPORT [Suspect]
     Active Substance: ABOBOTULINUMTOXINA
     Indication: OFF LABEL USE
  9. BACLOFEN. [Concomitant]
     Active Substance: BACLOFEN
     Indication: MUSCLE SPASTICITY
     Dates: start: 20170511, end: 20180627
  10. SCOPOLAMINE [Concomitant]
     Active Substance: SCOPOLAMINE
     Indication: DROOLING
     Route: 061
     Dates: start: 20180510, end: 20191221
  11. VITAMIN D3 [Concomitant]
     Active Substance: CHOLECALCIFEROL
     Dosage: QD DAILY
     Dates: start: 20190924, end: 20191221
  12. BACLOFEN. [Concomitant]
     Active Substance: BACLOFEN
     Dates: start: 20190502, end: 20191221
  13. ARTANE [Concomitant]
     Active Substance: TRIHEXYPHENIDYL HYDROCHLORIDE
     Dates: start: 20171207, end: 20180628
  14. ARTANE [Concomitant]
     Active Substance: TRIHEXYPHENIDYL HYDROCHLORIDE
     Indication: DROOLING
     Dates: start: 20170911, end: 20171207

REACTIONS (2)
  - Constipation [Recovered/Resolved]
  - Off label use [Unknown]

NARRATIVE: CASE EVENT DATE: 20180103
